FAERS Safety Report 9725572 (Version 1)
Quarter: 2013Q4

REPORT INFORMATION
  Report Type: Spontaneous
  Country: SE (occurrence: SE)
  Receive Date: 20131203
  Receipt Date: 20131203
  Transmission Date: 20140711
  Serious: Yes (Death, Other)
  Sender: FDA-Public Use
  Company Number: PHHY2013SE139875

PATIENT
  Sex: Male

DRUGS (1)
  1. TEGRETOL [Suspect]
     Dosage: 200 MG, Q4H
     Dates: start: 1988, end: 2013

REACTIONS (4)
  - Death [Fatal]
  - Acute leukaemia [Unknown]
  - Thyroid disorder [Unknown]
  - Rash [Unknown]
